FAERS Safety Report 14305543 (Version 2)
Quarter: 2018Q1

REPORT INFORMATION
  Report Type: Spontaneous
  Country: KR (occurrence: KR)
  Receive Date: 20171219
  Receipt Date: 20180216
  Transmission Date: 20180509
  Serious: Yes (Other)
  Sender: FDA-Public Use
  Company Number: KR-OTSUKA-16387946

PATIENT
  Age: 62 Year

DRUGS (3)
  1. ABILIFY [Suspect]
     Active Substance: ARIPIPRAZOLE
     Indication: TIC
     Dosage: 26MAY-01JUN:2.5MG  2JUN-22JUN:5MG/DAY  23JUN-13JUL:5MG BID
     Route: 048
     Dates: start: 20110526, end: 20110713
  2. INDENOL [Concomitant]
     Active Substance: PROPRANOLOL HYDROCHLORIDE
     Indication: PRODUCT USED FOR UNKNOWN INDICATION
     Dosage: 10 MG, BID
     Route: 048
  3. PROPRANOLOL HCL [Concomitant]
     Active Substance: PROPRANOLOL HYDROCHLORIDE
     Indication: PRODUCT USED FOR UNKNOWN INDICATION
     Dosage: 10 MG, QD
     Route: 065

REACTIONS (6)
  - Palpitations [Unknown]
  - Stupor [Unknown]
  - Asthenia [Unknown]
  - Insomnia [Unknown]
  - Feeling abnormal [Unknown]
  - Abulia [Unknown]
